FAERS Safety Report 6073432-6 (Version None)
Quarter: 2009Q1

REPORT INFORMATION
  Report Type: 
  Country: None (occurrence: None)
  Receive Date: 20090121
  Receipt Date: 20080423
  Transmission Date: 20090719
  Serious: Yes (Other)
  Sender: FDA-Public Use
  Company Number: US-WYE-H03765908

PATIENT
  Age: 46 Year
  Sex: Female
  Weight: 83.99 kg

DRUGS (3)
  1. PREMPRO [Suspect]
     Indication: HOT FLUSH
     Dosage: 0.3MG/1.5MG DAILY, ORAL
     Route: 048
     Dates: start: 20070101
  2. MULTIVITAMINS, PLAIN (MULTIVITAMINS, PLAIN) [Concomitant]
  3. DARVOCET-N (DEXTROPROPOXYPHENE/PARACETAMOL) [Concomitant]

REACTIONS (1)
  - THROMBOPHLEBITIS SUPERFICIAL [None]
